FAERS Safety Report 25527658 (Version 2)
Quarter: 2025Q3

REPORT INFORMATION
  Report Type: Spontaneous
  Country: TR (occurrence: TR)
  Receive Date: 20250708
  Receipt Date: 20250716
  Transmission Date: 20251021
  Serious: Yes (Other)
  Sender: ALKEM
  Company Number: TR-ALKEM LABORATORIES LIMITED-TR-ALKEM-2025-07059

PATIENT
  Age: 21 Year
  Sex: Female

DRUGS (1)
  1. ARIPIPRAZOLE [Suspect]
     Active Substance: ARIPIPRAZOLE
     Indication: Major depression
     Dosage: 15 MILLIGRAM, QD (PER DAY)
     Route: 065

REACTIONS (2)
  - Acute myopia [Recovered/Resolved]
  - Pseudomyopia [Recovered/Resolved]
